FAERS Safety Report 17172115 (Version 1)
Quarter: 2019Q4

REPORT INFORMATION
  Report Type: Spontaneous
  Country: US (occurrence: US)
  Receive Date: 20191218
  Receipt Date: 20191218
  Transmission Date: 20200122
  Serious: No
  Sender: FDA-Public Use
  Company Number: US-AMAG PHARMACEUTICALS, INC.-AMAG201906401

PATIENT
  Sex: Female

DRUGS (3)
  1. PAIN PILLS [Concomitant]
     Active Substance: UNSPECIFIED INGREDIENT
     Indication: VULVOVAGINAL DRYNESS
     Dosage: UNK
     Route: 048
  2. PAIN PILLS [Concomitant]
     Active Substance: UNSPECIFIED INGREDIENT
     Indication: PAIN
  3. INTRAROSA [Suspect]
     Active Substance: PRASTERONE
     Indication: BURNING SENSATION
     Dosage: UNK
     Route: 067
     Dates: start: 20191029

REACTIONS (3)
  - Underdose [Unknown]
  - Vaginal discharge [Not Recovered/Not Resolved]
  - Off label use [Unknown]

NARRATIVE: CASE EVENT DATE: 20191030
